FAERS Safety Report 12316757 (Version 2)
Quarter: 2016Q2

REPORT INFORMATION
  Report Type: Spontaneous
  Country: DK (occurrence: DK)
  Receive Date: 20160429
  Receipt Date: 20160517
  Transmission Date: 20160815
  Serious: Yes (Hospitalization, Disabling, Other)
  Sender: FDA-Public Use
  Company Number: DK-009507513-2011SP023675

PATIENT
  Age: 42 Year
  Sex: Female

DRUGS (3)
  1. COZAAR [Concomitant]
     Active Substance: LOSARTAN POTASSIUM
     Indication: HYPERTENSION
     Dosage: UPDATE( 07SEP2011)
     Route: 048
     Dates: start: 1999
  2. DESOGESTREL AND ETHINYL ESTRADIOL [Suspect]
     Active Substance: DESOGESTREL\ETHINYL ESTRADIOL
     Indication: ORAL CONTRACEPTION
     Dosage: 1 DF, DAILY
     Route: 048
     Dates: end: 200912
  3. METOPROLOL TARTRATE. [Concomitant]
     Active Substance: METOPROLOL TARTRATE
     Indication: HYPERTENSION
     Dosage: UPDATE( 07SEP2011)
     Dates: start: 1999

REACTIONS (7)
  - Kidney infection [Recovering/Resolving]
  - Pneumonia [Recovering/Resolving]
  - Calculus urethral [Recovering/Resolving]
  - Pulmonary thrombosis [Unknown]
  - Abdominal infection [Unknown]
  - Pleurisy [Unknown]
  - Pulmonary artery thrombosis [Recovered/Resolved]

NARRATIVE: CASE EVENT DATE: 2009
